FAERS Safety Report 4380420-4 (Version None)
Quarter: 2004Q2

REPORT INFORMATION
  Report Type: 
  Country: None (occurrence: None)
  Receive Date: 20040614
  Receipt Date: 20040602
  Transmission Date: 20050107
  Serious: Yes (Hospitalization)
  Sender: FDA-Public Use
  Company Number: 2004217209FR

PATIENT
  Age: 65 Year
  Sex: Female

DRUGS (1)
  1. SULFASALAZINE [Suspect]
     Indication: POLYARTHRITIS
     Dosage: 500 MG, BID, ORAL
     Route: 048
     Dates: start: 20040301, end: 20040312

REACTIONS (17)
  - ANOREXIA [None]
  - ARTHRALGIA [None]
  - ASTHENIA [None]
  - COLITIS [None]
  - DERMATITIS EXFOLIATIVE [None]
  - DIARRHOEA [None]
  - DISSEMINATED INTRAVASCULAR COAGULATION [None]
  - DYSPNOEA AT REST [None]
  - HEPATITIS [None]
  - LEUKOPENIA [None]
  - METABOLIC ACIDOSIS [None]
  - MYALGIA [None]
  - PHARYNGOLARYNGEAL PAIN [None]
  - PYREXIA [None]
  - RENAL FAILURE [None]
  - THROMBOCYTOPENIA [None]
  - TOXIC SKIN ERUPTION [None]
